FAERS Safety Report 13875212 (Version 2)
Quarter: 2017Q3

REPORT INFORMATION
  Report Type: Spontaneous
  Country: FR (occurrence: FR)
  Receive Date: 20170816
  Receipt Date: 20170913
  Transmission Date: 20171127
  Serious: Yes (Death, Hospitalization)
  Sender: FDA-Public Use
  Company Number: FR-ROCHE-1974970

PATIENT
  Age: 90 Year
  Sex: Female

DRUGS (9)
  1. ROCEPHINE [Suspect]
     Active Substance: CEFTRIAXONE SODIUM
     Indication: PYREXIA
     Route: 042
     Dates: start: 20170622, end: 20170707
  2. VANCOMYCINE [Suspect]
     Active Substance: VANCOMYCIN
     Indication: PYREXIA
     Route: 042
     Dates: start: 20170628, end: 20170705
  3. PREVISCAN (FRANCE) [Suspect]
     Active Substance: FLUINDIONE
     Indication: PROPHYLAXIS
     Route: 065
     Dates: start: 20170703, end: 20170707
  4. ATORVASTATINE [Suspect]
     Active Substance: ATORVASTATIN
     Indication: PROPHYLAXIS
     Route: 065
     Dates: start: 20170630, end: 20170707
  5. HEPARIN [Concomitant]
     Active Substance: HEPARIN SODIUM
     Indication: PROPHYLAXIS
     Route: 030
     Dates: start: 20170703
  6. ATARAX [Suspect]
     Active Substance: HYDROXYZINE HYDROCHLORIDE
     Indication: ANXIETY
     Route: 048
     Dates: start: 20170704, end: 20170707
  7. COVERAM [Concomitant]
     Active Substance: AMLODIPINE\PERINDOPRIL
  8. OFLOXACIN. [Concomitant]
     Active Substance: OFLOXACIN
  9. LASILIX [Concomitant]
     Active Substance: FUROSEMIDE

REACTIONS (2)
  - Linear IgA disease [Fatal]
  - Renal failure [Fatal]

NARRATIVE: CASE EVENT DATE: 20170704
